FAERS Safety Report 23350056 (Version 1)
Quarter: 2023Q4

REPORT INFORMATION
  Report Type: Spontaneous
  Country: KR (occurrence: KR)
  Receive Date: 20231229
  Receipt Date: 20231229
  Transmission Date: 20240109
  Serious: Yes (Hospitalization, Other)
  Sender: FDA-Public Use
  Company Number: KR-Accord-397499

PATIENT
  Age: 62 Year
  Sex: Male
  Weight: 39.1 kg

DRUGS (36)
  1. CARBOPLATIN [Suspect]
     Active Substance: CARBOPLATIN
     Indication: Squamous cell carcinoma of head and neck
     Dosage: 5 AUC, 1Q3W
     Route: 042
     Dates: start: 20230811, end: 20230811
  2. FLUOROURACIL [Suspect]
     Active Substance: FLUOROURACIL
     Indication: Squamous cell carcinoma of head and neck
     Dosage: QD
     Route: 042
     Dates: start: 20230811, end: 20230814
  3. AMPICILLIN SODIUM\SULBACTAM SODIUM [Concomitant]
     Active Substance: AMPICILLIN SODIUM\SULBACTAM SODIUM
     Dates: start: 20230906, end: 20231005
  4. BIPHENYL DICARBOXYLATE [Concomitant]
     Dates: start: 20230919, end: 20231017
  5. CELECOXIB [Concomitant]
     Active Substance: CELECOXIB
     Dates: start: 20231021
  6. CHLORHEXIDINE GLUCONATE [Concomitant]
     Active Substance: CHLORHEXIDINE GLUCONATE
     Dates: start: 20230721
  7. CHLORPHENIRAMINE MALEATE [Concomitant]
     Active Substance: CHLORPHENIRAMINE MALEATE
     Dates: start: 20230811
  8. CIMETIDINE [Concomitant]
     Active Substance: CIMETIDINE
     Dates: start: 20230811
  9. DEXAMETHASONE [Concomitant]
     Active Substance: DEXAMETHASONE
     Dates: start: 20230811
  10. DICLOFENAC [Concomitant]
     Active Substance: DICLOFENAC
     Dates: start: 20230821
  11. ESOMEPRAZOLE [Concomitant]
     Active Substance: ESOMEPRAZOLE
     Dates: start: 20230911, end: 20231017
  12. EPINEPHRINE HYDROCHLORIDE [Concomitant]
     Active Substance: EPINEPHRINE HYDROCHLORIDE
     Dates: start: 20230918, end: 20230918
  13. FENTANYL CITRATE [Concomitant]
     Active Substance: FENTANYL CITRATE
     Dates: start: 20230816
  14. HYDROCORTISONE SODIUM SUCCINATE [Concomitant]
     Active Substance: HYDROCORTISONE SODIUM SUCCINATE
     Dates: start: 20230921, end: 20230922
  15. LACTULOSE [Concomitant]
     Active Substance: LACTULOSE
     Dates: start: 20230830, end: 20231113
  16. LANSOPRAZOLE [Concomitant]
     Active Substance: LANSOPRAZOLE
     Dates: start: 20231019
  17. MAGNESIUM SULFATE [Concomitant]
     Active Substance: MAGNESIUM SULFATE\MAGNESIUM SULFATE HEPTAHYDRATE
     Dates: start: 20230921, end: 20230924
  18. MOSAPRIDE CITRATE [Concomitant]
     Active Substance: MOSAPRIDE CITRATE
     Dates: start: 20230829, end: 20230921
  19. METHYLPREDNISOLONE SODIUM SUCCINATE [Concomitant]
     Active Substance: METHYLPREDNISOLONE SODIUM SUCCINATE
     Dates: start: 20230920, end: 20231004
  20. NAPROXEN [Concomitant]
     Active Substance: NAPROXEN
     Dates: start: 20230911, end: 20231015
  21. NETUPITANT\PALONOSETRON HYDROCHLORIDE [Concomitant]
     Active Substance: NETUPITANT\PALONOSETRON HYDROCHLORIDE
     Dates: start: 20230811
  22. ORNITHINE ASPARTATE [Concomitant]
     Active Substance: ORNITHINE ASPARTATE
     Dates: start: 20230917, end: 20231005
  23. PEMBROLIZUMAB [Concomitant]
     Active Substance: PEMBROLIZUMAB
     Indication: Squamous cell carcinoma of head and neck
     Dosage: 1Q3W
     Route: 042
     Dates: start: 20230811, end: 20230811
  24. MEPERIDINE HYDROCHLORIDE [Concomitant]
     Active Substance: MEPERIDINE HYDROCHLORIDE
     Dates: start: 20230918, end: 20230918
  25. POTASSIUM CHLORIDE [Concomitant]
     Active Substance: POTASSIUM CHLORIDE
     Dates: start: 20230922, end: 20230923
  26. POTASSIUM PHOSPHATE, MONOBASIC [Concomitant]
     Active Substance: POTASSIUM PHOSPHATE, MONOBASIC
     Dates: start: 20230921, end: 20230924
  27. PREDNISOLONE [Concomitant]
     Active Substance: PREDNISOLONE
     Dates: start: 20231004, end: 20231017
  28. DIETARY SUPPLEMENT\HERBALS\MILK THISTLE [Concomitant]
     Active Substance: MILK THISTLE
     Dates: start: 20230921, end: 20231017
  29. SODIUM CHLORIDE [Concomitant]
     Active Substance: SODIUM CHLORIDE
     Dates: start: 20230918, end: 20230919
  30. THIAMINE [Concomitant]
     Active Substance: THIAMINE
     Dates: start: 20230917, end: 20230918
  31. URSODIOL [Concomitant]
     Active Substance: URSODIOL
     Dates: start: 20230829
  32. PEMBROLIZUMAB [Concomitant]
     Active Substance: PEMBROLIZUMAB
     Indication: Squamous cell carcinoma of head and neck
     Dosage: 1Q3W
     Route: 042
     Dates: start: 20230911, end: 20230911
  33. CARBOPLATIN [Suspect]
     Active Substance: CARBOPLATIN
     Indication: Squamous cell carcinoma of head and neck
     Dosage: 4 AUC, 1Q3W
     Route: 042
     Dates: start: 20230911, end: 20230911
  34. CARBOPLATIN [Suspect]
     Active Substance: CARBOPLATIN
     Indication: Squamous cell carcinoma of head and neck
     Dosage: 4 AUC, 1Q3W
     Route: 042
     Dates: start: 20231011, end: 20231011
  35. FLUOROURACIL [Suspect]
     Active Substance: FLUOROURACIL
     Indication: Squamous cell carcinoma of head and neck
     Dosage: QD
     Route: 042
     Dates: start: 20230811, end: 20230814
  36. FLUOROURACIL [Suspect]
     Active Substance: FLUOROURACIL
     Indication: Squamous cell carcinoma of head and neck
     Dosage: QD
     Route: 042
     Dates: start: 20231011, end: 20231014

REACTIONS (2)
  - Catheter site haemorrhage [Recovered/Resolved]
  - Febrile neutropenia [Recovered/Resolved]

NARRATIVE: CASE EVENT DATE: 20231014
